FAERS Safety Report 24889283 (Version 1)
Quarter: 2025Q1

REPORT INFORMATION
  Report Type: Other
  Country: US (occurrence: US)
  Receive Date: 20250127
  Receipt Date: 20250127
  Transmission Date: 20250408
  Serious: Yes (Hospitalization)
  Sender: BIONPHARMA INC.
  Company Number: US-Bion-014675

PATIENT
  Age: 43 Year
  Sex: Male

DRUGS (5)
  1. VALPROIC ACID [Suspect]
     Active Substance: VALPROIC ACID
     Indication: Idiopathic generalised epilepsy
  2. LAMOTRIGINE [Concomitant]
     Active Substance: LAMOTRIGINE
     Indication: Idiopathic generalised epilepsy
  3. CLOBAZAM [Concomitant]
     Active Substance: CLOBAZAM
     Indication: Idiopathic generalised epilepsy
  4. BRIVARACETAM [Concomitant]
     Active Substance: BRIVARACETAM
     Indication: Idiopathic generalised epilepsy
  5. ETHOSUXIMIDE [Concomitant]
     Active Substance: ETHOSUXIMIDE
     Indication: Idiopathic generalised epilepsy

REACTIONS (1)
  - Drug resistance [Unknown]
